FAERS Safety Report 20440729 (Version 1)
Quarter: 2022Q1

REPORT INFORMATION
  Report Type: Spontaneous
  Country: CN (occurrence: CN)
  Receive Date: 20220207
  Receipt Date: 20220207
  Transmission Date: 20220423
  Serious: Yes (Other)
  Sender: FDA-Public Use
  Company Number: CN-BAXTER-2022BAX002245

PATIENT
  Age: 1 Year
  Sex: Female
  Weight: 10 kg

DRUGS (13)
  1. CYCLOPHOSPHAMIDE [Suspect]
     Active Substance: CYCLOPHOSPHAMIDE
     Indication: Neuroblastoma
     Dosage: FIRST CHEMOTHERAPY
     Route: 041
     Dates: start: 202112
  2. CYCLOPHOSPHAMIDE [Suspect]
     Active Substance: CYCLOPHOSPHAMIDE
     Dosage: SECOND INDUCTION REGIMEN FOR NEUROBLASTOMA HIGH-RISK GROUP
     Route: 041
     Dates: start: 20220116, end: 20220120
  3. CYCLOPHOSPHAMIDE [Suspect]
     Active Substance: CYCLOPHOSPHAMIDE
     Dosage: DOSE RE-INTRODUCED
     Route: 041
  4. MESNA [Suspect]
     Active Substance: MESNA
     Indication: Neuroblastoma
     Route: 041
     Dates: start: 20220116, end: 20220120
  5. MESNA [Suspect]
     Active Substance: MESNA
     Dosage: DOSE RE-INTRODUCED
     Route: 041
  6. TOPOTECAN HYDROCHLORIDE [Suspect]
     Active Substance: TOPOTECAN HYDROCHLORIDE
     Indication: Neuroblastoma
     Dosage: FIRST INDUCTION REGIMEN FOR NEUROBLASTOMA HIGH-RISK GROUP
     Route: 041
     Dates: start: 202112
  7. TOPOTECAN HYDROCHLORIDE [Suspect]
     Active Substance: TOPOTECAN HYDROCHLORIDE
     Dosage: SECOND INDUCTION REGIMEN FOR NEUROBLASTOMA HIGH-RISK GROUP
     Route: 041
     Dates: start: 20220116, end: 20220120
  8. TOPOTECAN HYDROCHLORIDE [Suspect]
     Active Substance: TOPOTECAN HYDROCHLORIDE
     Dosage: DOSE RE-INTRODUCED
     Route: 041
  9. FUROSEMIDE [Suspect]
     Active Substance: FUROSEMIDE
     Indication: Neuroblastoma
     Route: 042
     Dates: start: 20220116, end: 20220120
  10. FUROSEMIDE [Suspect]
     Active Substance: FUROSEMIDE
     Dosage: DOSE RE-INTRODUCED
     Route: 042
  11. PALONOSETRON HYDROCHLORIDE [Suspect]
     Active Substance: PALONOSETRON HYDROCHLORIDE
     Indication: Neuroblastoma
     Route: 042
     Dates: start: 20220116, end: 20220120
  12. PALONOSETRON HYDROCHLORIDE [Suspect]
     Active Substance: PALONOSETRON HYDROCHLORIDE
     Dosage: DOSE RE-INTRODUCED
     Route: 042
  13. cefoperazone sodium and sulabactum sodium [Concomitant]
     Indication: Anti-infective therapy
     Route: 041
     Dates: start: 20220125, end: 20220128

REACTIONS (2)
  - Myelosuppression [Unknown]
  - Myelosuppression [Recovered/Resolved]

NARRATIVE: CASE EVENT DATE: 20211223
